FAERS Safety Report 16337019 (Version 2)
Quarter: 2019Q2

REPORT INFORMATION
  Report Type: Spontaneous
  Country: IT (occurrence: IT)
  Receive Date: 20190521
  Receipt Date: 20190618
  Transmission Date: 20190711
  Serious: Yes (Hospitalization, Other)
  Sender: FDA-Public Use
  Company Number: IT-ROCHE-2322352

PATIENT
  Age: 33 Year
  Sex: Female

DRUGS (5)
  1. KESTINE [Concomitant]
     Active Substance: EBASTINE
     Indication: PRODUCT USED FOR UNKNOWN INDICATION
     Dosage: 2 (TABLETS) DF, QD
     Route: 065
     Dates: end: 20190324
  2. KESTINE [Concomitant]
     Active Substance: EBASTINE
     Dosage: 1 DF, EVERY THREE DAYS
     Route: 065
     Dates: end: 20190417
  3. XOLAIR [Suspect]
     Active Substance: OMALIZUMAB
     Dosage: TWO VIALS OF 150 MG
     Route: 058
     Dates: start: 20190417
  4. KESTINE [Concomitant]
     Active Substance: EBASTINE
     Dosage: 1 (TABLET) DF, QD
     Route: 065
     Dates: end: 20190531
  5. XOLAIR [Suspect]
     Active Substance: OMALIZUMAB
     Indication: CHRONIC SPONTANEOUS URTICARIA
     Dosage: TWO VIALS OF 150 MG
     Route: 058
     Dates: start: 20190318

REACTIONS (3)
  - Urticaria [Recovering/Resolving]
  - Serum sickness [Recovered/Resolved]
  - Angioedema [Recovering/Resolving]

NARRATIVE: CASE EVENT DATE: 20190419
